FAERS Safety Report 7739372-9 (Version None)
Quarter: 2011Q3

REPORT INFORMATION
  Report Type: 
  Country: None (occurrence: None)
  Receive Date: 20110909
  Receipt Date: 20110825
  Transmission Date: 20111222
  Serious: Yes (Other)
  Sender: FDA-Public Use
  Company Number: US-JNJFOC-20110900313

PATIENT
  Age: 23 Year
  Sex: Male
  Weight: 72.58 kg

DRUGS (1)
  1. LISTERINE TOTAL CARE PLUS WHITENING [Suspect]
     Indication: DENTAL DISORDER PROPHYLAXIS
     Dosage: 1/4 CAP TWICE
     Route: 048
     Dates: start: 20110824, end: 20110825

REACTIONS (2)
  - GLOSSODYNIA [None]
  - TONGUE DISORDER [None]
